FAERS Safety Report 18562190 (Version 1)
Quarter: 2020Q4

REPORT INFORMATION
  Report Type: Spontaneous
  Country: US (occurrence: US)
  Receive Date: 20201201
  Receipt Date: 20201201
  Transmission Date: 20210114
  Serious: No
  Sender: FDA-Public Use
  Company Number: US-SA-2020SA337850

PATIENT

DRUGS (2)
  1. DUPIXENT [Suspect]
     Active Substance: DUPILUMAB
     Indication: ASTHMA
     Dosage: 2 DF, 1X, (2 SYRINGES ONCE)
     Dates: start: 202001, end: 202001
  2. DUPIXENT [Suspect]
     Active Substance: DUPILUMAB
     Indication: NASAL POLYPS
     Dosage: 1 DF, QOW (1 SYRINGE EVERY 2 WEEKS)
     Dates: start: 2020

REACTIONS (2)
  - Tooth disorder [Unknown]
  - Jaw disorder [Unknown]

NARRATIVE: CASE EVENT DATE: 202011
